FAERS Safety Report 9394647 (Version 2)
Quarter: 2013Q3

REPORT INFORMATION
  Report Type: Report from Study
  Country: JP (occurrence: JP)
  Receive Date: 20130711
  Receipt Date: 20130711
  Transmission Date: 20140515
  Serious: No
  Sender: FDA-Public Use
  Company Number: JP-009507513-1208JPN009477

PATIENT
  Age: 57 Year
  Sex: Male
  Weight: 59 kg

DRUGS (14)
  1. PEGINTRON [Suspect]
     Dosage: 1.0 MICROGRAM PER KILOGRAM, QW, DAILY DOSE UNKNOWN
     Route: 058
     Dates: start: 20120918, end: 20121023
  2. REBETOL [Suspect]
     Indication: CHRONIC HEPATITIS C
     Dosage: 400 MG, QD
     Route: 048
     Dates: start: 20120509, end: 20120618
  3. REBETOL [Suspect]
     Dosage: 200 MG, QD
     Route: 048
     Dates: start: 20120619, end: 20120702
  4. REBETOL [Suspect]
     Dosage: 200 MG, 2 DAY, DAILY DOSE UNKNOWN
     Route: 048
     Dates: start: 20120703, end: 20120910
  5. REBETOL [Suspect]
     Dosage: 200 MG, QD
     Route: 048
     Dates: start: 20120911, end: 20121029
  6. TELAVIC [Suspect]
     Indication: CHRONIC HEPATITIS C
     Dosage: 1500 MG, QD
     Route: 048
     Dates: start: 20120509, end: 20120730
  7. URSO [Concomitant]
     Indication: CHRONIC HEPATITIS C
     Dosage: 600 MG, QD, FORMULATION :POR
     Route: 048
  8. GASTER D [Concomitant]
     Indication: GASTRITIS
     Dosage: 20 MG, QD, FORMULATION: POR
     Route: 048
  9. ALOSENN (SENNA) [Concomitant]
     Indication: CONSTIPATION
     Dosage: 1 G, QD, FORMULATION: POR
     Route: 048
     Dates: end: 20120716
  10. VITAMEDIN [Suspect]
     Indication: SPINAL DISORDER
     Dosage: 3 DF, QD
     Route: 048
     Dates: start: 20110911
  11. PEGINTRON [Suspect]
     Indication: CHRONIC HEPATITIS C
     Dosage: 1.5 MICROGRAM PER KILOGRAM, QW, DAILY DOSE UNKNOWN
     Route: 058
     Dates: start: 20120509, end: 20120521
  12. PEGINTRON [Suspect]
     Dosage: 1 MICROGRAM PER KILOGRAM, QW, DAILY DOSE UNKNOWN
     Route: 058
     Dates: start: 20120522, end: 20120528
  13. PEGINTRON [Suspect]
     Dosage: 0.8 MICROGRAM PER KILOGRAM, QW, DAILY DOSE UNKNOWN
     Route: 058
     Dates: start: 20120529, end: 20120827
  14. PEGINTRON [Suspect]
     Dosage: 0.9 MICROGRAM PER KILOGRAM, QW, DAILY DOSE UNKNOWN
     Route: 058
     Dates: start: 20120828, end: 20120917

REACTIONS (5)
  - Incorrect route of drug administration [Unknown]
  - Anaemia [Recovering/Resolving]
  - Hyperuricaemia [Recovered/Resolved]
  - Pyrexia [Recovered/Resolved]
  - Platelet count decreased [Recovered/Resolved]
